FAERS Safety Report 6021300-8 (Version None)
Quarter: 2008Q4

REPORT INFORMATION
  Report Type: 
  Country: None (occurrence: None)
  Receive Date: 20081229
  Receipt Date: 20081215
  Transmission Date: 20090506
  Serious: Yes (Hospitalization, Other)
  Sender: FDA-Public Use
  Company Number: FR-PFIZER INC-2008155328

PATIENT

DRUGS (4)
  1. LYRICA [Suspect]
     Indication: PAIN
     Dosage: 75 MG, 2X/DAY
     Dates: start: 20081118, end: 20081201
  2. ANTIDEPRESSANTS [Concomitant]
  3. DI-ANTALVIC [Concomitant]
  4. ACENOCOUMAROL [Concomitant]

REACTIONS (2)
  - BREAST CANCER FEMALE [None]
  - DIPLOPIA [None]
